FAERS Safety Report 13013173 (Version 1)
Quarter: 2016Q4

REPORT INFORMATION
  Report Type: Spontaneous
  Country: US (occurrence: US)
  Receive Date: 20161209
  Receipt Date: 20161209
  Transmission Date: 20170207
  Serious: No
  Sender: FDA-Public Use
  Company Number: US-BAYER-2016-232285

PATIENT
  Age: 4 Year
  Sex: Female

DRUGS (3)
  1. CLARITIN [Suspect]
     Active Substance: LORATADINE
     Indication: BRONCHIAL HYPERREACTIVITY
     Dosage: 1 DF, QD
     Route: 048
     Dates: start: 2015
  2. CLARITIN [Suspect]
     Active Substance: LORATADINE
     Indication: BRONCHIAL HYPERREACTIVITY
     Dosage: 2 DF, ONCE
     Route: 048
     Dates: start: 20161206, end: 20161206
  3. VITAMINS [Concomitant]
     Active Substance: VITAMINS
     Dosage: UNK

REACTIONS (2)
  - Accidental exposure to product by child [Recovered/Resolved]
  - Product use issue [Unknown]

NARRATIVE: CASE EVENT DATE: 2015
